FAERS Safety Report 15494224 (Version 2)
Quarter: 2018Q4

REPORT INFORMATION
  Report Type: Spontaneous
  Country: BR (occurrence: BR)
  Receive Date: 20181012
  Receipt Date: 20181106
  Transmission Date: 20190205
  Serious: Yes (Life-Threatening, Hospitalization, Other)
  Sender: FDA-Public Use
  Company Number: BR-PFIZER INC-2018408503

PATIENT
  Age: 64 Year
  Sex: Male

DRUGS (9)
  1. LORAX [Suspect]
     Active Substance: LORAZEPAM
     Dosage: 1 MG, 4 TABLETS DAILY
     Dates: start: 2018
  2. APRESOLINA [Concomitant]
     Active Substance: HYDRALAZINE HYDROCHLORIDE
     Indication: HYPERTENSION
     Dosage: UNK
     Dates: start: 2004
  3. LORAX [Suspect]
     Active Substance: LORAZEPAM
     Indication: SEDATION
     Dosage: 4 MG TO 6 MG PER DAY
     Dates: start: 2004
  4. MELATONIN [Concomitant]
     Active Substance: MELATONIN
     Indication: SLEEP DISORDER
     Dosage: UNK
  5. SUSTRATE [Concomitant]
     Active Substance: PROPATYL NITRATE
     Indication: INFARCTION
     Dosage: UNK
     Dates: start: 2004
  6. VASTAREL [Concomitant]
     Active Substance: TRIMETAZIDINE DIHYDROCHLORIDE
     Indication: INFARCTION
     Dosage: UNK
     Dates: start: 2004
  7. SELOZOK [Concomitant]
     Active Substance: METOPROLOL SUCCINATE
     Indication: INFARCTION
     Dosage: UNK
     Dates: start: 2004
  8. ALLOPURINOL. [Concomitant]
     Active Substance: ALLOPURINOL
     Dosage: UNK
     Dates: start: 2004
  9. CLOPIN [CLOPIDOGREL BISULFATE] [Concomitant]
     Indication: INFARCTION
     Dosage: UNK
     Dates: start: 2004

REACTIONS (4)
  - Product use in unapproved indication [Unknown]
  - Hypertensive crisis [Recovered/Resolved]
  - Angina pectoris [Recovered/Resolved]
  - Aortic aneurysm [Recovered/Resolved]

NARRATIVE: CASE EVENT DATE: 2004
